FAERS Safety Report 10152361 (Version 1)
Quarter: 2014Q2

REPORT INFORMATION
  Report Type: Spontaneous
  Country: NL (occurrence: NL)
  Receive Date: 20140505
  Receipt Date: 20140505
  Transmission Date: 20141212
  Serious: Yes (Death, Hospitalization)
  Sender: FDA-Public Use
  Company Number: NL-SA-2014SA056186

PATIENT
  Age: 70 Year
  Sex: Female

DRUGS (2)
  1. CAPECITABINE [Suspect]
     Indication: RECTAL CANCER
     Route: 065
  2. OXALIPLATIN [Suspect]
     Indication: RECTAL CANCER
     Route: 065

REACTIONS (19)
  - Venoocclusive liver disease [Unknown]
  - Hepatic failure [Unknown]
  - Ascites [Unknown]
  - Blood bilirubin increased [Unknown]
  - Aspartate aminotransferase increased [Unknown]
  - Alanine aminotransferase increased [Unknown]
  - Gamma-glutamyltransferase increased [Unknown]
  - Intestinal haemorrhage [Unknown]
  - Thrombocytopenia [Unknown]
  - Multi-organ failure [Fatal]
  - Hepatic failure [Fatal]
  - Renal failure [Fatal]
  - Respiratory failure [Fatal]
  - Acute myocardial infarction [Unknown]
  - Sepsis [Unknown]
  - Mucosal inflammation [Unknown]
  - Metabolic acidosis [Unknown]
  - Hypokalaemia [Unknown]
  - Ulcer [Unknown]
